FAERS Safety Report 4703238-9 (Version None)
Quarter: 2005Q2

REPORT INFORMATION
  Report Type: 
  Country: None (occurrence: None)
  Receive Date: 20050628
  Receipt Date: 20050613
  Transmission Date: 20051028
  Serious: Yes (Death, Hospitalization)
  Sender: FDA-Public Use
  Company Number: DSA_26624_2005

PATIENT
  Age: 88 Year
  Sex: Male

DRUGS (4)
  1. LORAZEPAM [Suspect]
     Dosage: DF PO
     Route: 048
     Dates: end: 20050327
  2. ANANDRON [Suspect]
     Dosage: DF PO
     Route: 048
  3. ASPEGIC 325 [Suspect]
     Dosage: DF PO
     Route: 048
     Dates: end: 20050327
  4. MIANSERIN [Suspect]
     Dosage: DF PO
     Route: 048
     Dates: end: 20050327

REACTIONS (1)
  - HEPATITIS [None]
